FAERS Safety Report 6619704-5 (Version None)
Quarter: 2010Q1

REPORT INFORMATION
  Report Type: 
  Country: None (occurrence: None)
  Receive Date: 20100309
  Receipt Date: 20100223
  Transmission Date: 20100710
  Serious: Yes (Hospitalization)
  Sender: FDA-Public Use
  Company Number: PHHY2010AU10476

PATIENT
  Sex: Female
  Weight: 80 kg

DRUGS (1)
  1. GLEEVEC [Suspect]
     Indication: HAEMATOLOGICAL MALIGNANCY
     Dosage: 400 MG DAILY

REACTIONS (3)
  - ARTHRALGIA [None]
  - CONCOMITANT DISEASE PROGRESSION [None]
  - OSTEOARTHRITIS [None]
